FAERS Safety Report 13838172 (Version 2)
Quarter: 2017Q3

REPORT INFORMATION
  Report Type: Report from Study
  Country: None (occurrence: CA)
  Receive Date: 20170807
  Receipt Date: 20170814
  Transmission Date: 20171127
  Serious: Yes (Hospitalization, Other)
  Sender: FDA-Public Use
  Company Number: CA-ABBVIE-17K-028-2062667-00

PATIENT
  Sex: Male

DRUGS (11)
  1. DUODOPA [Suspect]
     Active Substance: CARBIDOPA\LEVODOPA
     Dosage: MORNING BOLUS: 13.5 ML
     Route: 050
  2. PMS-AMANTADINE [Concomitant]
     Indication: DYSKINESIA
     Dosage: IN AM
  3. AURO MIRTAZAPINE [Concomitant]
     Indication: PRODUCT USED FOR UNKNOWN INDICATION
     Dosage: AT BEDTIME
     Route: 048
  4. DUODOPA [Suspect]
     Active Substance: CARBIDOPA\LEVODOPA
     Indication: PARKINSON^S DISEASE
     Dosage: DOSE: 20MG/ML?MORNING BOLUS: 10.5 ML?CONTINUOUS DOSE RATE: 5.6 ML/H?EXTRA DOSE: 1 ML
     Route: 050
     Dates: start: 20160625
  5. LEVOCARB 100/10 [Concomitant]
     Indication: PRODUCT USED FOR UNKNOWN INDICATION
  6. PMS CLONAZEPAM [Concomitant]
     Indication: INSOMNIA
     Dosage: AT BEDTIME
  7. ENTACAPONE TEVA [Concomitant]
     Active Substance: ENTACAPONE
     Indication: PRODUCT USED FOR UNKNOWN INDICATION
  8. SPIRIVA [Concomitant]
     Active Substance: TIOTROPIUM BROMIDE MONOHYDRATE
     Indication: ASTHMA
     Route: 055
  9. TAMSULOSIN CR SANDOZ [Concomitant]
     Indication: URINARY TRACT DISORDER
     Dosage: IN AM
  10. ACT RANITIDINE [Concomitant]
     Active Substance: RANITIDINE
     Indication: GASTRIC DISORDER
     Dosage: AT BEDTIME
  11. CENTRUM SELECT 50 PLUS [Concomitant]
     Indication: PRODUCT USED FOR UNKNOWN INDICATION
     Dosage: IN AM

REACTIONS (1)
  - Pneumonia [Unknown]
